FAERS Safety Report 11959676 (Version 2)
Quarter: 2016Q1

REPORT INFORMATION
  Report Type: Report from Study
  Country: US (occurrence: US)
  Receive Date: 20160126
  Receipt Date: 20160129
  Transmission Date: 20160526
  Serious: Yes (Hospitalization)
  Sender: FDA-Public Use
  Company Number: US-ABBVIE-15K-163-1355613-00

PATIENT
  Age: 39 Year
  Sex: Female

DRUGS (3)
  1. HUMIRA [Suspect]
     Active Substance: ADALIMUMAB
     Indication: CROHN^S DISEASE
     Route: 065
     Dates: start: 201411, end: 20150206
  2. HUMIRA [Suspect]
     Active Substance: ADALIMUMAB
     Route: 065
     Dates: start: 20150417
  3. HUMIRA [Suspect]
     Active Substance: ADALIMUMAB
     Route: 065
     Dates: start: 2015, end: 20150317

REACTIONS (10)
  - Clostridium difficile infection [Recovered/Resolved]
  - Oropharyngeal pain [Not Recovered/Not Resolved]
  - C-reactive protein increased [Unknown]
  - Night sweats [Not Recovered/Not Resolved]
  - Clostridium difficile infection [Recovered/Resolved]
  - Drug effect decreased [Not Recovered/Not Resolved]
  - Clostridium difficile infection [Unknown]
  - Rash papular [Not Recovered/Not Resolved]
  - Wound drainage [Not Recovered/Not Resolved]
  - Impaired healing [Not Recovered/Not Resolved]

NARRATIVE: CASE EVENT DATE: 201501
